FAERS Safety Report 14749371 (Version 1)
Quarter: 2018Q2

REPORT INFORMATION
  Report Type: Spontaneous
  Country: US (occurrence: US)
  Receive Date: 20180411
  Receipt Date: 20180411
  Transmission Date: 20180711
  Serious: No
  Sender: FDA-Public Use
  Company Number: US-AMGEN-USASP2018034656

PATIENT
  Age: 71 Year
  Sex: Female

DRUGS (1)
  1. PROLIA [Suspect]
     Active Substance: DENOSUMAB
     Indication: OSTEOPENIA
     Dosage: 60 MG, Q6MO
     Route: 065
     Dates: end: 2017

REACTIONS (7)
  - Tooth infection [Unknown]
  - Sleep disorder due to a general medical condition [Unknown]
  - Tooth fracture [Unknown]
  - Off label use [Unknown]
  - Tooth loss [Unknown]
  - Arthralgia [Unknown]
  - Constipation [Recovered/Resolved]

NARRATIVE: CASE EVENT DATE: 2017
